FAERS Safety Report 20186719 (Version 1)
Quarter: 2021Q4

REPORT INFORMATION
  Report Type: Spontaneous
  Country: US (occurrence: US)
  Receive Date: 20211215
  Receipt Date: 20211215
  Transmission Date: 20220303
  Serious: No
  Sender: FDA-Public Use
  Company Number: US-BEH-2021139445

PATIENT
  Sex: Male

DRUGS (2)
  1. PRIVIGEN [Suspect]
     Active Substance: HUMAN IMMUNOGLOBULIN G
     Indication: Hypogammaglobulinaemia
     Dosage: 40 GRAM, QMT
     Route: 042
  2. PRIVIGEN [Suspect]
     Active Substance: HUMAN IMMUNOGLOBULIN G
     Dosage: 5 GRAM, QMT
     Route: 042

REACTIONS (5)
  - Urticaria [Recovering/Resolving]
  - Pruritus [Recovering/Resolving]
  - Hypoaesthesia oral [Recovering/Resolving]
  - Dysphagia [Recovering/Resolving]
  - Hypertension [Recovering/Resolving]
